FAERS Safety Report 8195693-X (Version None)
Quarter: 2012Q1

REPORT INFORMATION
  Report Type: 
  Country: None (occurrence: None)
  Receive Date: 20120308
  Receipt Date: 20120305
  Transmission Date: 20120608
  Serious: Yes (Other)
  Sender: FDA-Public Use
  Company Number: BR-PFIZER INC-2012059362

PATIENT
  Age: 65 Year
  Sex: Female

DRUGS (4)
  1. LYRICA [Suspect]
     Dosage: 75 MG UNK
     Route: 048
     Dates: start: 20120101
  2. CELEBREX [Suspect]
     Indication: BONE PAIN
     Dosage: 200 MG (ONE CAPSULE), 1X/DAY
     Route: 048
     Dates: start: 20070101, end: 20110901
  3. LYRICA [Suspect]
     Indication: FIBROMYALGIA
     Dosage: 75 MG (ONE CAPSULE), 2X/DAY
     Route: 048
     Dates: start: 20100701, end: 20110701
  4. LIORAM [Concomitant]
     Indication: SLEEP DISORDER THERAPY
     Dosage: UNK
     Dates: start: 20100101

REACTIONS (3)
  - DEPRESSION [None]
  - FIBROMYALGIA [None]
  - PAIN [None]
